FAERS Safety Report 17862168 (Version 2)
Quarter: 2020Q2

REPORT INFORMATION
  Report Type: Spontaneous
  Country: CA (occurrence: CA)
  Receive Date: 20200604
  Receipt Date: 20200610
  Transmission Date: 20200714
  Serious: Yes (Other)
  Sender: FDA-Public Use
  Company Number: CA-BAXTER-2020BAX011254

PATIENT
  Age: 11 Year
  Sex: Male

DRUGS (9)
  1. VINORELBINE TARTRATE. [Suspect]
     Active Substance: VINORELBINE TARTRATE
     Indication: EMBRYONAL RHABDOMYOSARCOMA
     Dosage: FOR INJECTION, DOSAGE FORM: SOLUTION INTRAVENOUS
     Route: 065
  2. IRINOTECAN [Suspect]
     Active Substance: IRINOTECAN
     Indication: EMBRYONAL RHABDOMYOSARCOMA
     Dosage: DOSAGE FORM: SOLUTION INTRAVENOUS
     Route: 042
  3. PROCYTOX (CYCLOPHOSPHAMIDE) 2000MG/VIAL [Suspect]
     Active Substance: CYCLOPHOSPHAMIDE
     Indication: EMBRYONAL RHABDOMYOSARCOMA
     Dosage: DOSAGE FORM: NOT SPECIFIED
     Route: 065
  4. IFEX [Suspect]
     Active Substance: IFOSFAMIDE
     Indication: EMBRYONAL RHABDOMYOSARCOMA
     Dosage: FOR INJECTION USP, DOSAGE FORM: POWDER FOR SOLUTION INTRAVENOUS
     Route: 065
  5. DOXORUBICIN [Suspect]
     Active Substance: DOXORUBICIN
     Indication: EMBRYONAL RHABDOMYOSARCOMA
     Dosage: DOSAGE FORM: SOLUTION INTRAVENOUS
     Route: 042
  6. VINCRISTINE SULFATE. [Suspect]
     Active Substance: VINCRISTINE SULFATE
     Indication: EMBRYONAL RHABDOMYOSARCOMA
     Dosage: DOSAGE FORM: NOT SPECIFIED
     Route: 065
  7. PROCYTOX CYCLOPHOSPHAMIDE TAB50MG [Suspect]
     Active Substance: CYCLOPHOSPHAMIDE
     Indication: EMBRYONAL RHABDOMYOSARCOMA
     Dosage: DOSAGE FORM: NOT SPECIFIED
     Route: 048
  8. COSMEGEN [Suspect]
     Active Substance: DACTINOMYCIN
     Indication: EMBRYONAL RHABDOMYOSARCOMA
     Dosage: DOSAGE FORM: POWDER FOR SOLUTION INTRAVENOUS
     Route: 065
  9. DACTINOMYCIN [Suspect]
     Active Substance: DACTINOMYCIN
     Indication: EMBRYONAL RHABDOMYOSARCOMA
     Route: 065

REACTIONS (3)
  - Embryonal rhabdomyosarcoma [Unknown]
  - Pulmonary mass [Unknown]
  - Malignant neoplasm progression [Unknown]
